FAERS Safety Report 7990968-9 (Version None)
Quarter: 2011Q4

REPORT INFORMATION
  Report Type: 
  Country: None (occurrence: None)
  Receive Date: 20111215
  Receipt Date: 20111205
  Transmission Date: 20120403
  Serious: Yes (Hospitalization)
  Sender: FDA-Public Use
  Company Number: TCI2011A05385

PATIENT
  Age: 85 Year
  Sex: Male

DRUGS (9)
  1. ROZEREM [Suspect]
     Indication: INSOMNIA
     Dosage: 8 MG (8 MG, 1 IN 1 D)
     Route: 048
     Dates: start: 20110714, end: 20110821
  2. ARDEPHYLLIN (THEOPHYLLINE) [Concomitant]
  3. SELBEX (TEPRENONE) [Concomitant]
  4. TOUGHMAC E (ENZYMES NOS) [Concomitant]
  5. TAPIZOL (LANSOPRAZOLE) [Concomitant]
  6. SAWATENE (CARBOCISTEINE) [Concomitant]
  7. RHYTHMY (RILMAZAFONE HYDROCHLORIDE) [Suspect]
     Indication: INSOMNIA
     Dosage: (1 MG, 1 D)
     Route: 048
     Dates: start: 20110711
  8. ALVESCO [Concomitant]
  9. SPIRIVA [Concomitant]

REACTIONS (11)
  - JAUNDICE [None]
  - FLATULENCE [None]
  - NEPHROLITHIASIS [None]
  - NO THERAPEUTIC RESPONSE [None]
  - CHOLECYSTITIS [None]
  - SPLENOMEGALY [None]
  - ASCITES [None]
  - CHRONIC HEPATITIS [None]
  - OEDEMA PERIPHERAL [None]
  - HEPATIC CIRRHOSIS [None]
  - PROTHROMBIN TIME PROLONGED [None]
